FAERS Safety Report 5563026-0 (Version None)
Quarter: 2007Q4

REPORT INFORMATION
  Report Type: 
  Country: None (occurrence: None)
  Receive Date: 20071217
  Receipt Date: 20071205
  Transmission Date: 20080405
  Serious: Yes (Other)
  Sender: FDA-Public Use
  Company Number: BR-ROCHE-535784

PATIENT
  Age: 31 Year
  Sex: Female
  Weight: 50 kg

DRUGS (2)
  1. ROACUTAN [Suspect]
     Indication: ACNE
     Route: 048
     Dates: start: 20071101, end: 20071205
  2. SIBUTRAMINE [Concomitant]
     Dates: end: 20070101

REACTIONS (2)
  - NO ADVERSE EVENT [None]
  - PREGNANCY [None]
